FAERS Safety Report 18416524 (Version 2)
Quarter: 2020Q4

REPORT INFORMATION
  Report Type: Spontaneous
  Country: JP (occurrence: JP)
  Receive Date: 20201022
  Receipt Date: 20201120
  Transmission Date: 20210114
  Serious: Yes (Hospitalization)
  Sender: FDA-Public Use
  Company Number: JP-PFIZER INC-2020407839

PATIENT
  Age: 78 Year
  Sex: Female
  Weight: 50.8 kg

DRUGS (12)
  1. MAGMITT [Concomitant]
     Active Substance: MAGNESIUM OXIDE
     Indication: CONSTIPATION
     Dosage: 330 MG, AS NEEDED
  2. CORTRIL [Suspect]
     Active Substance: HYDROCORTISONE
     Dosage: 10 MG, 1X/DAY (AFTER BREAKFAST)
  3. BISOPROLOL FUMARATE. [Concomitant]
     Active Substance: BISOPROLOL FUMARATE
     Dosage: 2.5 MG, 1X/DAY (AFTER BREAKFAST)
  4. INCREMIN [FERRIC PYROPHOSPHATE] [Concomitant]
     Active Substance: FERRIC PYROPHOSPHATE
     Dosage: 5 ML, 1X/DAY (AFTER LUNCH)
  5. LULICON [Concomitant]
     Active Substance: LULICONAZOLE
     Dosage: UNK (SEVERAL TIMES DAILY)
     Route: 061
  6. TAKECAB [Concomitant]
     Active Substance: VONOPRAZAN FUMARATE
     Dosage: 10 MG, 1X/DAY (AFTER BREAKFAST)
  7. SENNOSIDE [SENNOSIDE A+B CALCIUM] [Concomitant]
     Active Substance: SENNOSIDES A AND B
     Dosage: 12 MG, 1X/DAY (BEFORE BEDTIME)
  8. THYRADIN-S [Concomitant]
     Active Substance: LEVOTHYROXINE
     Dosage: 100 UG, 1X/DAY (AFTER BREAKFAST 2-50 UG TABLETS)
  9. MIYA-BM [Concomitant]
     Active Substance: CLOSTRIDIUM BUTYRICUM SPORES STRAIN M-55
     Dosage: 1 G, 3X/DAY (AFTER EACH MEALS)
  10. DICLOFENAC SODIUM. [Concomitant]
     Active Substance: DICLOFENAC SODIUM
     Indication: PAIN
     Dosage: 25 MG, AS NEEDED
  11. ZOLPIDEM TARTRATE TOWA [Concomitant]
     Dosage: 5 MG, 1X/DAY (BEFORE BEDTIME)
  12. LYRICA [Suspect]
     Active Substance: PREGABALIN
     Dosage: 25 MG, 2X/DAY (AFTER BREAKFAST AND SUPPER)

REACTIONS (2)
  - Condition aggravated [Unknown]
  - Spinal compression fracture [Unknown]

NARRATIVE: CASE EVENT DATE: 20200819
